FAERS Safety Report 5153437-X (Version None)
Quarter: 2006Q4

REPORT INFORMATION
  Report Type: 
  Country: None (occurrence: None)
  Receive Date: 20061117
  Receipt Date: 20061009
  Transmission Date: 20070319
  Serious: Yes (Hospitalization)
  Sender: FDA-Public Use
  Company Number: JP-ABBOTT-06P-087-0346398-00

PATIENT
  Sex: Male
  Weight: 46 kg

DRUGS (4)
  1. CEFZON [Suspect]
     Indication: URINARY TRACT INFECTION
     Route: 048
     Dates: start: 20060912, end: 20060921
  2. TAMSULOSIN HCL [Suspect]
     Indication: BENIGN PROSTATIC HYPERPLASIA
     Route: 048
     Dates: start: 20060912
  3. BETHANECHOL CHLORIDE [Concomitant]
     Indication: DRUG USE FOR UNKNOWN INDICATION
     Dates: start: 20060912
  4. BROTIZOLAM [Concomitant]
     Indication: DRUG USE FOR UNKNOWN INDICATION
     Dates: start: 20060912, end: 20061004

REACTIONS (3)
  - DYSURIA [None]
  - NEUTROPENIA [None]
  - URINARY RETENTION [None]
